FAERS Safety Report 24993602 (Version 4)
Quarter: 2025Q1

REPORT INFORMATION
  Report Type: Report from Study
  Country: US (occurrence: US)
  Receive Date: 20250221
  Receipt Date: 20250325
  Transmission Date: 20250409
  Serious: Yes (Death, Hospitalization, Other)
  Sender: TAKEDA
  Company Number: US-TAKEDA-2025TUS018406

PATIENT
  Age: 65 Year
  Sex: Male
  Weight: 64 kg

DRUGS (1)
  1. FRUQUINTINIB [Suspect]
     Active Substance: FRUQUINTINIB
     Indication: Rectal cancer

REACTIONS (8)
  - Death [Fatal]
  - Gait inability [Unknown]
  - Asthenia [Unknown]
  - Infection [Unknown]
  - Mucosal inflammation [Unknown]
  - Muscular weakness [Unknown]
  - Tumour pain [Unknown]
  - Anal fistula [Unknown]

NARRATIVE: CASE EVENT DATE: 20250225
